FAERS Safety Report 10337848 (Version 1)
Quarter: 2014Q3

REPORT INFORMATION
  Report Type: Spontaneous
  Country: US (occurrence: None)
  Receive Date: 20140723
  Receipt Date: 20140723
  Transmission Date: 20150326
  Serious: No
  Sender: FDA-Public Use
  Company Number: None

PATIENT

DRUGS (2)
  1. LEUCOVORIN CALCIUM LEUCOVORIN CALCIUM NOVAPLUS [Suspect]
     Active Substance: LEUCOVORIN CALCIUM
     Route: 030
  2. TOPOSAR [Suspect]
     Active Substance: ETOPOSIDE
     Route: 042

REACTIONS (1)
  - Product packaging confusion [None]
